FAERS Safety Report 9031363 (Version 1)
Quarter: 2013Q1

REPORT INFORMATION
  Report Type: Spontaneous
  Country: US (occurrence: US)
  Receive Date: 20130124
  Receipt Date: 20130124
  Transmission Date: 20140127
  Serious: Yes (Other)
  Sender: FDA-Public Use
  Company Number: PHHY2013US006117

PATIENT
  Sex: Female

DRUGS (1)
  1. METOPROLOL [Suspect]
     Dosage: UNK UKN, UNK

REACTIONS (2)
  - Wrong technique in drug usage process [Unknown]
  - Arrhythmia [Unknown]
